FAERS Safety Report 8507763 (Version 2)
Quarter: 2014Q2

REPORT INFORMATION
  Report Type: Spontaneous
  Country: US (occurrence: US)
  Receive Date: 20120412
  Receipt Date: 20140420
  Transmission Date: 20141212
  Serious: No
  Sender: FDA-Public Use
  Company Number: US-ASTRAZENECA-2011SE30072

PATIENT
  Age: 60 Year
  Sex: Male
  Weight: 117.9 kg

DRUGS (4)
  1. NEXIUM [Suspect]
     Indication: GASTROOESOPHAGEAL REFLUX DISEASE
     Route: 048
     Dates: start: 2007
  2. NEXIUM [Suspect]
     Indication: GASTROOESOPHAGEAL REFLUX DISEASE
     Route: 048
     Dates: end: 20140212
  3. ZANTAC [Concomitant]
  4. REGLAN [Concomitant]
     Indication: ABDOMINAL DISTENSION

REACTIONS (3)
  - Dyspepsia [Unknown]
  - Cough [Unknown]
  - Drug dose omission [Not Recovered/Not Resolved]
